FAERS Safety Report 9355127 (Version 28)
Quarter: 2016Q2

REPORT INFORMATION
  Report Type: Report from Study
  Country: CA (occurrence: CA)
  Receive Date: 20130619
  Receipt Date: 20160527
  Transmission Date: 20160815
  Serious: Yes (Other)
  Sender: FDA-Public Use
  Company Number: CA-ROCHE-1237704

PATIENT
  Age: 42 Year
  Sex: Female
  Weight: 108 kg

DRUGS (11)
  1. METHOTREXATE [Suspect]
     Active Substance: METHOTREXATE
     Indication: RHEUMATOID ARTHRITIS
     Route: 065
     Dates: end: 201306
  2. METHYLPREDNISOLONE. [Concomitant]
     Active Substance: METHYLPREDNISOLONE
     Indication: PREMEDICATION
     Route: 042
     Dates: start: 20091222, end: 20110830
  3. IBUPROFEN. [Concomitant]
     Active Substance: IBUPROFEN
  4. ACTEMRA [Suspect]
     Active Substance: TOCILIZUMAB
     Route: 042
     Dates: start: 20140415
  5. ACTEMRA [Suspect]
     Active Substance: TOCILIZUMAB
     Route: 042
     Dates: start: 20150218
  6. RITUXAN [Suspect]
     Active Substance: RITUXIMAB
     Indication: RHEUMATOID ARTHRITIS
     Route: 042
     Dates: start: 20091222, end: 20110830
  7. DIPHENHYDRAMINE HCL [Concomitant]
     Active Substance: DIPHENHYDRAMINE HYDROCHLORIDE
     Indication: PREMEDICATION
     Route: 048
     Dates: start: 20091222, end: 20110830
  8. ACTEMRA [Suspect]
     Active Substance: TOCILIZUMAB
     Indication: RHEUMATOID ARTHRITIS
     Route: 042
     Dates: start: 20130516, end: 20140625
  9. ACTEMRA [Suspect]
     Active Substance: TOCILIZUMAB
     Route: 042
     Dates: start: 20150122
  10. ACTEMRA [Suspect]
     Active Substance: TOCILIZUMAB
     Route: 042
     Dates: start: 20140430
  11. ACETAMINOPHEN. [Concomitant]
     Active Substance: ACETAMINOPHEN
     Indication: PREMEDICATION
     Route: 048
     Dates: start: 20091222, end: 20110830

REACTIONS (40)
  - Oedema [Unknown]
  - Weight increased [Unknown]
  - Musculoskeletal pain [Recovering/Resolving]
  - Joint range of motion decreased [Not Recovered/Not Resolved]
  - Pharyngitis streptococcal [Recovered/Resolved]
  - Arthralgia [Unknown]
  - Nasal congestion [Recovering/Resolving]
  - Hand deformity [Unknown]
  - Musculoskeletal chest pain [Unknown]
  - Influenza [Recovered/Resolved]
  - Drug ineffective [Unknown]
  - Depressive symptom [Recovering/Resolving]
  - Fungal infection [Unknown]
  - Oropharyngeal pain [Not Recovered/Not Resolved]
  - Joint effusion [Recovering/Resolving]
  - Hypothyroidism [Unknown]
  - Memory impairment [Unknown]
  - Headache [Recovered/Resolved]
  - Nasopharyngitis [Unknown]
  - Seasonal allergy [Unknown]
  - Suture insertion [Unknown]
  - Contusion [Unknown]
  - Bladder pain [Unknown]
  - Premenstrual syndrome [Recovering/Resolving]
  - Pruritus [Unknown]
  - Fear [Not Recovered/Not Resolved]
  - Peripheral swelling [Recovering/Resolving]
  - Rheumatoid arthritis [Not Recovered/Not Resolved]
  - Nausea [Recovered/Resolved]
  - Myalgia [Not Recovered/Not Resolved]
  - Pain [Not Recovered/Not Resolved]
  - Spinal pain [Unknown]
  - Pain in extremity [Not Recovered/Not Resolved]
  - Joint swelling [Recovering/Resolving]
  - Diarrhoea [Recovered/Resolved]
  - Lower respiratory tract congestion [Recovering/Resolving]
  - Lower respiratory tract infection [Recovering/Resolving]
  - Disease prodromal stage [Unknown]
  - Fall [Unknown]
  - Ear pain [Not Recovered/Not Resolved]

NARRATIVE: CASE EVENT DATE: 2013
